APPROVED DRUG PRODUCT: ZONTIVITY
Active Ingredient: VORAPAXAR SULFATE
Strength: EQ 2.08MG BASE
Dosage Form/Route: TABLET;ORAL
Application: N204886 | Product #001
Applicant: KEY THERAPEUTICS LLC
Approved: May 8, 2014 | RLD: Yes | RS: No | Type: DISCN

PATENTS:
Patent 7304078 | Expires: Dec 23, 2027